FAERS Safety Report 9712213 (Version 1)
Quarter: 2013Q4

REPORT INFORMATION
  Report Type: Spontaneous
  Country: AU (occurrence: AU)
  Receive Date: 20131126
  Receipt Date: 20131126
  Transmission Date: 20140711
  Serious: Yes (Disabling)
  Sender: FDA-Public Use
  Company Number: AU-PURDUE-USA-2013-0108943

PATIENT
  Sex: Female

DRUGS (4)
  1. NORSPAN (NDA 21-306) [Suspect]
     Indication: ARTHRITIS
     Dosage: 10 MCG/HR, WEEKLY
     Route: 062
     Dates: start: 201308
  2. NORSPAN (NDA 21-306) [Suspect]
     Dosage: 20 UNK, UNK
     Route: 062
     Dates: start: 201303, end: 201308
  3. MAGNESIUM [Concomitant]
     Indication: PRODUCT USED FOR UNKNOWN INDICATION
  4. MULTIVITAMIN                       /00097801/ [Concomitant]
     Indication: PRODUCT USED FOR UNKNOWN INDICATION

REACTIONS (1)
  - Dropped head syndrome [Not Recovered/Not Resolved]
